FAERS Safety Report 8450047 (Version 2)
Quarter: 2012Q4

REPORT INFORMATION
  Report Type: 
  Country: US (occurrence: US)
  Receive Date: 20120309
  Receipt Date: 20121004
  Transmission Date: 20130627
  Serious: Yes (Hospitalization, Other)
  Sender: FDA-Public Use
  Company Number: US-BAYER-2012-021916

PATIENT
  Age: 42 Year
  Sex: Female
  Weight: 54.42 kg

DRUGS (8)
  1. YAZ [Suspect]
     Indication: CONTRACEPTION
     Dosage: UNK
     Dates: start: 200810, end: 200910
  2. NSAID^S [Concomitant]
  3. NUTRITIONAL SUPPLEMENT [Concomitant]
  4. FLONASE [Concomitant]
     Indication: MULTIPLE ALLERGIES
     Dosage: 50 ?g,
     Route: 045
     Dates: start: 2002
  5. DEXAMETHASONE W/TOBRAMYCIN [Concomitant]
     Indication: EYE INFECTION VIRAL
     Route: 047
  6. IBUPROFEN [Concomitant]
     Indication: EYE INFECTION VIRAL
  7. FAMOTIDIN [Concomitant]
     Dosage: 20 mg, daily
  8. ANTACIDS [Concomitant]

REACTIONS (12)
  - Intestinal ischaemia [None]
  - Colitis ischaemic [None]
  - Embolism venous [None]
  - Thrombosis [None]
  - Rectal haemorrhage [None]
  - Abdominal pain [None]
  - Diarrhoea [None]
  - Pain [None]
  - Anxiety [None]
  - Anhedonia [None]
  - Fear [None]
  - Psychological trauma [None]
